FAERS Safety Report 19968802 (Version 1)
Quarter: 2021Q4

REPORT INFORMATION
  Report Type: Spontaneous
  Country: US (occurrence: US)
  Receive Date: 20211019
  Receipt Date: 20211019
  Transmission Date: 20220303
  Serious: Yes (Life-Threatening, Hospitalization)
  Sender: FDA-Public Use
  Company Number: US-MYLANLABS-2021M1074116

PATIENT
  Age: 59 Year
  Sex: Male

DRUGS (1)
  1. TRASTUZUMAB [Suspect]
     Active Substance: TRASTUZUMAB
     Indication: Breast cancer stage IV
     Dosage: UNK
     Route: 065

REACTIONS (5)
  - Traumatic lung injury [Recovering/Resolving]
  - Acute respiratory failure [Recovering/Resolving]
  - Pneumonia [Recovering/Resolving]
  - Actinomycotic pulmonary infection [Recovering/Resolving]
  - Respiratory distress [Recovering/Resolving]
